FAERS Safety Report 4939522-3 (Version None)
Quarter: 2006Q1

REPORT INFORMATION
  Report Type: 
  Country: None (occurrence: None)
  Receive Date: 20060307
  Receipt Date: 20060223
  Transmission Date: 20060701
  Serious: Yes (Hospitalization, Other)
  Sender: FDA-Public Use
  Company Number: 2006025351

PATIENT
  Age: 76 Year
  Sex: Male
  Weight: 40 kg

DRUGS (8)
  1. VFEND [Suspect]
     Indication: PNEUMONIA ASPERGILLUS
     Dosage: 400 MG (200 MG, 2 IN 1 D), ORAL
     Route: 048
     Dates: start: 20051227, end: 20060210
  2. LIPITOR [Concomitant]
  3. ALL OTHER THERAPEUTIC PRODUCTS (ALL OTHER THERAPEUTIC PRODUCTS) [Concomitant]
  4. ASPIRIN [Concomitant]
  5. MAGNESIUM OXIDE (MAGNESIUM OXIDE) [Concomitant]
  6. SINGULAIR [Concomitant]
  7. ENALAPRIL MALEATE [Concomitant]
  8. MUCOBULIN (AMBROXOL HYDROCHLORIDE) [Concomitant]

REACTIONS (11)
  - BLOOD ALKALINE PHOSPHATASE INCREASED [None]
  - BLOOD LACTATE DEHYDROGENASE INCREASED [None]
  - BLOOD POTASSIUM INCREASED [None]
  - CYANOPSIA [None]
  - DRUG INEFFECTIVE [None]
  - HAEMOLYSIS [None]
  - HEPATIC FUNCTION ABNORMAL [None]
  - INFECTION [None]
  - REFUSAL OF TREATMENT BY PATIENT [None]
  - RHABDOMYOLYSIS [None]
  - VISUAL DISTURBANCE [None]
